FAERS Safety Report 25059802 (Version 1)
Quarter: 2025Q1

REPORT INFORMATION
  Report Type: Spontaneous
  Country: US (occurrence: US)
  Receive Date: 20250310
  Receipt Date: 20250310
  Transmission Date: 20250408
  Serious: No
  Sender: ABBVIE
  Company Number: US-ABBVIE-6163160

PATIENT
  Sex: Male

DRUGS (1)
  1. HUMIRA [Suspect]
     Active Substance: ADALIMUMAB
     Indication: Product used for unknown indication
     Route: 058

REACTIONS (5)
  - Eosinophilic cellulitis [Unknown]
  - Pustular psoriasis [Unknown]
  - Discomfort [Unknown]
  - Eczema [Unknown]
  - Subcorneal pustular dermatosis [Unknown]
